FAERS Safety Report 20844720 (Version 3)
Quarter: 2022Q3

REPORT INFORMATION
  Report Type: Spontaneous
  Country: GR (occurrence: GR)
  Receive Date: 20220518
  Receipt Date: 20220801
  Transmission Date: 20221027
  Serious: Yes (Death, Other)
  Sender: FDA-Public Use
  Company Number: GR-MENARINI-GR-MEN-082392

PATIENT
  Age: 92 Year
  Sex: Male

DRUGS (3)
  1. OLMESARTAN MEDOXOMIL [Suspect]
     Active Substance: OLMESARTAN MEDOXOMIL
     Indication: Hypertension
     Dosage: UNK
     Route: 048
     Dates: end: 202204
  2. OLMESARTAN MEDOXOMIL [Suspect]
     Active Substance: OLMESARTAN MEDOXOMIL
     Dosage: 10 MG, TID (1 TAB OF 10 MG IN MORNING AND 2 TABS OF 10 MG IN THE EVENING (TOTAL OF 30 MG PER DAY))
     Route: 048
     Dates: start: 202204, end: 202204
  3. AMLODIPINE BESYLATE\HYDROCHLOROTHIAZIDE\OLMESARTAN MEDOXOMIL [Suspect]
     Active Substance: AMLODIPINE BESYLATE\HYDROCHLOROTHIAZIDE\OLMESARTAN MEDOXOMIL
     Indication: Hypertension
     Dosage: 1 DF, QD (20MG/5MG/12.5MG (20MG/5MG/12.5MG, 1 IN 1 D))
     Route: 048
     Dates: start: 202204

REACTIONS (9)
  - Myocardial infarction [Fatal]
  - Heart rate increased [Not Recovered/Not Resolved]
  - Diarrhoea [Not Recovered/Not Resolved]
  - Somnolence [Not Recovered/Not Resolved]
  - Hyperhidrosis [Not Recovered/Not Resolved]
  - Cough [Not Recovered/Not Resolved]
  - Pharyngeal erythema [Not Recovered/Not Resolved]
  - Loss of therapeutic response [Recovered/Resolved]
  - Off label use [Recovered/Resolved]

NARRATIVE: CASE EVENT DATE: 20220401
